FAERS Safety Report 15307463 (Version 1)
Quarter: 2018Q3

REPORT INFORMATION
  Report Type: Spontaneous
  Country: US (occurrence: US)
  Receive Date: 20180822
  Receipt Date: 20180822
  Transmission Date: 20181010
  Serious: No
  Sender: FDA-Public Use
  Company Number: US-BIOCOMPATIBLES UK LTD-2018BTG01672

PATIENT
  Age: 73 Year
  Sex: Female

DRUGS (1)
  1. VARITHENA [Suspect]
     Active Substance: POLIDOCANOL
     Indication: PERIPHERAL VENOUS DISEASE
     Dosage: 15 CC, SINGLE
     Route: 065
     Dates: start: 20180505

REACTIONS (3)
  - Blister [Unknown]
  - Skin sensitisation [Unknown]
  - Skin discolouration [Unknown]

NARRATIVE: CASE EVENT DATE: 20180510
